FAERS Safety Report 6364326-7 (Version None)
Quarter: 2009Q3

REPORT INFORMATION
  Report Type: 
  Country: None (occurrence: None)
  Receive Date: 20090919
  Receipt Date: 20090720
  Transmission Date: 20100115
  Serious: Yes (Other)
  Sender: FDA-Public Use
  Company Number: US-ABBOTT-09P-163-0586536-00

PATIENT
  Sex: Male
  Weight: 81.72 kg

DRUGS (4)
  1. HUMIRA [Suspect]
     Indication: CROHN'S DISEASE
     Route: 058
     Dates: start: 20080401, end: 20090501
  2. HUMIRA [Suspect]
     Route: 058
     Dates: start: 20090501
  3. PREDNISONE [Concomitant]
     Indication: CROHN'S DISEASE
  4. LOPID [Concomitant]
     Indication: BLOOD TRIGLYCERIDES INCREASED

REACTIONS (3)
  - CROHN'S DISEASE [None]
  - DEHYDRATION [None]
  - WEIGHT DECREASED [None]
